FAERS Safety Report 8875266 (Version 1)
Quarter: 2012Q4

REPORT INFORMATION
  Report Type: 
  Country: US (occurrence: US)
  Receive Date: 20121026
  Receipt Date: 20121026
  Transmission Date: 20130627
  Serious: No
  Sender: FDA-Public Use
  Company Number: US-AMGEN-USASP2012044775

PATIENT
  Age: 36 Year
  Sex: Female
  Weight: 69.39 kg

DRUGS (7)
  1. ENBREL [Suspect]
     Indication: PRODUCT USED FOR UNKNOWN INDICATION
     Dosage: 50 mg/ml, qwk
     Route: 058
  2. METHOTREXATE [Concomitant]
     Dosage: 2.5 mg, UNK
  3. FOLIC ACID [Concomitant]
     Dosage: UNK
  4. CYMBALTA [Concomitant]
     Dosage: 20 mg, UNK
  5. PROVIGIL [Concomitant]
     Dosage: 100 mg, UNK
  6. RESTASIS [Concomitant]
     Dosage: 0.05%
  7. CYCLOBENZAPRIN HCL [Concomitant]
     Dosage: 10 mg, UNK

REACTIONS (2)
  - Injection site erythema [Unknown]
  - Injection site pruritus [Unknown]
